FAERS Safety Report 8128880-7 (Version None)
Quarter: 2012Q1

REPORT INFORMATION
  Report Type: 
  Country: None (occurrence: None)
  Receive Date: 20120210
  Receipt Date: 20120208
  Transmission Date: 20120608
  Serious: Yes (Hospitalization, Other)
  Sender: FDA-Public Use
  Company Number: SE-PFIZER INC-2012033987

PATIENT
  Age: 81 Year
  Sex: Male

DRUGS (10)
  1. ENALAPRIL [Concomitant]
     Dosage: UNK
  2. AMLODIPINE [Suspect]
     Indication: ESSENTIAL HYPERTENSION
     Dosage: UNK
  3. LIPITOR [Suspect]
     Indication: HYPERTRIGLYCERIDAEMIA
  4. METFORMIN HCL [Suspect]
     Indication: DIABETES MELLITUS
     Dosage: UNK
  5. PRIMPERAN TAB [Concomitant]
     Dosage: UNK
  6. LIPITOR [Suspect]
     Indication: HYPERLIPIDAEMIA
     Dosage: UNK
  7. LACTULOSE [Concomitant]
     Dosage: UNK
  8. TOLTERODINE TARTRATE [Concomitant]
     Dosage: UNK
  9. ASPIRIN [Concomitant]
     Dosage: 75 MG, UNK
  10. NOVOMIX [Concomitant]
     Dosage: UNK

REACTIONS (4)
  - DIZZINESS [None]
  - NAUSEA [None]
  - DYSSTASIA [None]
  - VOMITING [None]
